FAERS Safety Report 7040391-9 (Version None)
Quarter: 2010Q4

REPORT INFORMATION
  Report Type: 
  Country: None (occurrence: None)
  Receive Date: 20101012
  Receipt Date: 20100930
  Transmission Date: 20110411
  Serious: Yes (Hospitalization, Other)
  Sender: FDA-Public Use
  Company Number: PHHY2010NL62531

PATIENT
  Sex: Female

DRUGS (17)
  1. ACLASTA [Suspect]
     Indication: OSTEOPOROSIS
     Dosage: 0.05MG/ML VIAL 100ML, 5 MG PER YEAR
     Dates: start: 20100903, end: 20100911
  2. CALCIUM WITH VITAMIN D 3 500/400 [Concomitant]
     Dosage: 1 DD
  3. METHOTREXATE [Concomitant]
     Dosage: 10 MG ONCE WEEKLY
     Route: 058
  4. ACE INHIBITOR NOS [Concomitant]
  5. ATORVASTATIN [Concomitant]
     Dosage: 1 X 40
  6. SERETIDE [Concomitant]
     Dosage: 2X2
  7. SPIRIVA [Concomitant]
     Dosage: 1 DD
  8. ACETYLCIPLEINE [Concomitant]
     Dosage: 3 X 200
  9. ASCAL [Concomitant]
  10. PERINDOPRIL [Concomitant]
     Dosage: 1X10
  11. FOLIC ACID [Concomitant]
     Dosage: 5MG PER WEEK
  12. PANTOPRAZOLE SODIUM [Concomitant]
     Dosage: 1 X 40
  13. MOVICOLON [Concomitant]
     Dosage: 1X1
  14. MIRTAZAPINE [Concomitant]
     Dosage: 1X15 MG
  15. ZOPICLON [Concomitant]
     Dosage: 1X 2.5MG
  16. PARACETAMOL [Concomitant]
     Dosage: 3DD 100
  17. OXAZEPAM [Concomitant]
     Dosage: 1X10

REACTIONS (13)
  - ABDOMINAL PAIN [None]
  - ALANINE AMINOTRANSFERASE INCREASED [None]
  - ASPARTATE AMINOTRANSFERASE INCREASED [None]
  - BACK PAIN [None]
  - BLOOD LACTATE DEHYDROGENASE ABNORMAL [None]
  - BONE PAIN [None]
  - CHOLELITHIASIS [None]
  - GAMMA-GLUTAMYLTRANSFERASE ABNORMAL [None]
  - HEPATOTOXICITY [None]
  - HYPOCALCAEMIA [None]
  - MENTAL IMPAIRMENT [None]
  - PAIN [None]
  - PAIN IN EXTREMITY [None]
